FAERS Safety Report 8274036-7 (Version None)
Quarter: 2012Q2

REPORT INFORMATION
  Report Type: 
  Country: None (occurrence: None)
  Receive Date: 20120411
  Receipt Date: 20120404
  Transmission Date: 20120825
  Serious: Yes (Other)
  Sender: FDA-Public Use
  Company Number: PHHY2010US36141

PATIENT
  Sex: Female

DRUGS (6)
  1. EXTAVIA [Suspect]
     Dosage: 0.25 MG, QOD
     Route: 058
     Dates: start: 20100301
  2. EXTAVIA [Suspect]
     Dosage: 0.25 MG, QOD
     Route: 058
  3. EXTAVIA [Suspect]
     Indication: MULTIPLE SCLEROSIS
     Dosage: 0.25 MG, QOD
     Route: 058
     Dates: start: 20100521
  4. TYLENOL (CAPLET) [Concomitant]
     Dosage: UNK UKN, UNK
  5. EXTAVIA [Suspect]
     Dosage: 0.3 MG, QOD
  6. BACTARE [Concomitant]
     Dosage: UNK UKN, UNK

REACTIONS (29)
  - MUSCULAR WEAKNESS [None]
  - WEIGHT DECREASED [None]
  - MENTAL IMPAIRMENT [None]
  - BODY FAT DISORDER [None]
  - CHILLS [None]
  - INJECTION SITE HAEMATOMA [None]
  - MALAISE [None]
  - INJECTION SITE SWELLING [None]
  - CONSTIPATION [None]
  - INJECTION SITE PAIN [None]
  - INJECTION SITE IRRITATION [None]
  - DRUG INEFFECTIVE [None]
  - GAIT DISTURBANCE [None]
  - FALL [None]
  - PAIN [None]
  - WRONG TECHNIQUE IN DRUG USAGE PROCESS [None]
  - MOVEMENT DISORDER [None]
  - PYREXIA [None]
  - INJECTION SITE SCAB [None]
  - URINARY INCONTINENCE [None]
  - HEADACHE [None]
  - HYPERHIDROSIS [None]
  - INJECTION SITE HAEMORRHAGE [None]
  - OSTEOPOROSIS [None]
  - CELLULITIS [None]
  - SKIN INFECTION [None]
  - FEAR OF FALLING [None]
  - PHOTOPHOBIA [None]
  - FRUSTRATION [None]
